FAERS Safety Report 21862844 (Version 1)
Quarter: 2023Q1

REPORT INFORMATION
  Report Type: Spontaneous
  Country: US (occurrence: US)
  Receive Date: 20230114
  Receipt Date: 20230114
  Transmission Date: 20230418
  Serious: No
  Sender: FDA-Public Use
  Company Number: US-drreddys-SPO/USA/22/0159063

PATIENT
  Age: 65 Year
  Sex: Female

DRUGS (14)
  1. LENALIDOMIDE [Suspect]
     Active Substance: LENALIDOMIDE
     Indication: Plasma cell myeloma
     Dosage: BY MOUTH DAILY ON DAYS 1-14 OF EACH 21-DAY CYCLE. TAKE WHOLE WITH WATER AT THE SAME TIME EACH DAY
     Route: 048
     Dates: start: 20221017
  2. METOPROLOL SUCCINATE [Concomitant]
     Active Substance: METOPROLOL SUCCINATE
     Indication: Product used for unknown indication
  3. Valsartan Tablets USP 40 mg, 80 mg, 160 mg, and 320 mg [Concomitant]
     Indication: Product used for unknown indication
  4. ZOLEDRONIC ACID [Concomitant]
     Active Substance: ZOLEDRONIC ACID
     Indication: Product used for unknown indication
     Dosage: 5MG/100M
  5. ACYCLOVIR [Concomitant]
     Active Substance: ACYCLOVIR
     Indication: Product used for unknown indication
  6. ASPIRIN 81 CHE 81MG [Concomitant]
     Indication: Product used for unknown indication
  7. BUDESONIDE CPE 3MG [Concomitant]
     Indication: Product used for unknown indication
  8. DEXAMETHASONE [Concomitant]
     Active Substance: DEXAMETHASONE
     Indication: Product used for unknown indication
  9. POTASSIUM CH TBC 20MEQ [Concomitant]
     Indication: Product used for unknown indication
  10. SODIUM BICAR TAB 650MG [Concomitant]
     Indication: Product used for unknown indication
  11. TRAMADOL HCL TAB 50MG [Concomitant]
     Indication: Product used for unknown indication
  12. TYLENOL TAB 325MG [Concomitant]
     Indication: Product used for unknown indication
  13. VELCADE SOL 3.5MG [Concomitant]
     Indication: Product used for unknown indication
  14. VITAMIN D TAB 25 MCG(1000 [Concomitant]
     Indication: Product used for unknown indication

REACTIONS (1)
  - Peripheral swelling [Unknown]
